FAERS Safety Report 24401645 (Version 1)
Quarter: 2024Q4

REPORT INFORMATION
  Report Type: Spontaneous
  Country: US (occurrence: US)
  Receive Date: 20241007
  Receipt Date: 20241007
  Transmission Date: 20250114
  Serious: No
  Sender: AUROBINDO
  Company Number: US-AUROBINDO-AUR-APL-2023-065705

PATIENT
  Age: 69 Year
  Sex: Female
  Weight: 86.18 kg

DRUGS (1)
  1. CLINDAMYCIN HYDROCHLORIDE [Suspect]
     Active Substance: CLINDAMYCIN HYDROCHLORIDE
     Indication: Blister
     Dosage: TWO TIMES A DAY
     Route: 065
     Dates: start: 20231019, end: 20231020

REACTIONS (5)
  - Pruritus [Recovered/Resolved]
  - Bed bug infestation [Recovered/Resolved]
  - Peripheral swelling [Recovered/Resolved]
  - Musculoskeletal discomfort [Recovered/Resolved]
  - Rash [Recovered/Resolved]

NARRATIVE: CASE EVENT DATE: 20231020
